FAERS Safety Report 12625024 (Version 2)
Quarter: 2016Q3

REPORT INFORMATION
  Report Type: Spontaneous
  Country: US (occurrence: US)
  Receive Date: 20160805
  Receipt Date: 20160901
  Transmission Date: 20161109
  Serious: No
  Sender: FDA-Public Use
  Company Number: US-PFIZER INC-2016340286

PATIENT
  Age: 72 Year
  Sex: Female
  Weight: 58.97 kg

DRUGS (1)
  1. ESTRING [Suspect]
     Active Substance: ESTRADIOL
     Indication: VULVOVAGINAL DRYNESS
     Dosage: 2 MG, EVERY 3 MONTHS
     Route: 067
     Dates: start: 20160707

REACTIONS (11)
  - Movement disorder [Not Recovered/Not Resolved]
  - Balance disorder [Unknown]
  - Gait disturbance [Not Recovered/Not Resolved]
  - Dizziness [Unknown]
  - Limb discomfort [Not Recovered/Not Resolved]
  - Headache [Unknown]
  - Insomnia [Unknown]
  - Vulvovaginal swelling [Not Recovered/Not Resolved]
  - Syncope [Unknown]
  - Neck pain [Unknown]
  - Paraesthesia [Unknown]

NARRATIVE: CASE EVENT DATE: 20160709
